FAERS Safety Report 10504113 (Version 1)
Quarter: 2014Q4

REPORT INFORMATION
  Report Type: Spontaneous
  Country: US (occurrence: US)
  Receive Date: 20141008
  Receipt Date: 20141008
  Transmission Date: 20150528
  Serious: No
  Sender: FDA-Public Use
  Company Number: US-BEH-2013039104

PATIENT
  Age: 58 Year
  Sex: Male
  Weight: 105 kg

DRUGS (2)
  1. MORPHINE [Concomitant]
     Active Substance: MORPHINE
  2. PRIVIGEN [Suspect]
     Active Substance: HUMAN IMMUNOGLOBULIN G
     Indication: PAIN
     Dosage: ??-???-2012

REACTIONS (2)
  - Hypersomnia [Unknown]
  - Fatigue [Unknown]
